FAERS Safety Report 9916423 (Version 2)
Quarter: 2014Q2

REPORT INFORMATION
  Report Type: Spontaneous
  Country: US (occurrence: None)
  Receive Date: 20140219
  Receipt Date: 20140417
  Transmission Date: 20141212
  Serious: Yes (Other)
  Sender: FDA-Public Use
  Company Number: 2179917

PATIENT
  Age: 76 Year
  Sex: Male

DRUGS (8)
  1. BLEOMYCIN SULPHATE [Suspect]
     Indication: PRODUCT USED FOR UNKNOWN INDICATION
     Dosage: UNKNOWN, UNKNOWN, UKNOWN, UNKNOWN UNKNOWN THERAPY DATES
  2. BRENTUXIMAB [Suspect]
     Indication: PRODUCT USED FOR UNKNOWN INDICATION
     Dosage: UNKNOWN, UNKNOWN, UNKNOWN, UNKNOWN THERAPY DATES
  3. TAMSULOSIN HYDROCHLORIDE) [Concomitant]
  4. CITALOPRAM HYDROCHLORIDE) [Concomitant]
  5. ALLOPURINOL [Concomitant]
  6. COLCHINE [Concomitant]
  7. PROCHLORPERAZINE MALEATE [Concomitant]
  8. DONEPEZIL HYDROCHLORIDE [Concomitant]

REACTIONS (3)
  - Lung infiltration [None]
  - Toxicity to various agents [None]
  - Non-Hodgkin^s lymphoma [None]
